FAERS Safety Report 6120507-9 (Version None)
Quarter: 2009Q1

REPORT INFORMATION
  Report Type: 
  Country: None (occurrence: None)
  Receive Date: 20090317
  Receipt Date: 20090309
  Transmission Date: 20090719
  Serious: Yes (Hospitalization)
  Sender: FDA-Public Use
  Company Number: US-KINGPHARMUSA00001-K200900264

PATIENT
  Sex: Female

DRUGS (17)
  1. SILVADENE [Suspect]
     Indication: LOCALISED INFECTION
     Dosage: UNK
     Dates: start: 20081101
  2. REBIF [Suspect]
     Indication: MULTIPLE SCLEROSIS
     Dosage: 44 MCG, TIW
     Route: 058
     Dates: start: 20060206, end: 20081226
  3. BONIVA [Suspect]
  4. VANCOMYCIN [Suspect]
     Indication: SEPSIS
     Dosage: UNK
     Dates: start: 20081222, end: 20081228
  5. CIPRO                              /00697201/ [Suspect]
     Indication: SEPSIS
     Dosage: UNK
     Dates: start: 20081224, end: 20081228
  6. ZOSYN [Suspect]
     Indication: INFECTION
     Dosage: UNK
     Dates: start: 20081222, end: 20081224
  7. PREDNISONE [Concomitant]
     Indication: SYSTEMIC LUPUS ERYTHEMATOSUS
     Dosage: 10 MG, UNK
     Route: 048
  8. ALBUTEROL [Concomitant]
     Indication: ASTHMA
     Dosage: UNK
  9. TYLENOL (CAPLET) [Concomitant]
     Indication: PREMEDICATION
     Dosage: UNK
  10. ASMANEX TWISTHALER [Concomitant]
     Indication: ASTHMA
     Dosage: 1 DF, QD
  11. ATIVAN [Concomitant]
     Dosage: 0.5 MG, PRN
     Route: 048
  12. ELAVIL [Concomitant]
     Dosage: 10 MG, QHS
     Route: 048
  13. FLONASE [Concomitant]
     Dosage: 1 DF, EACH NOSTRIL, QD
     Route: 045
  14. LABETALOL HCL [Concomitant]
     Indication: HYPERTENSION
     Dosage: 200 MG, BID
     Route: 048
  15. LISINOPRIL [Concomitant]
     Dosage: 10 MG, QD
     Route: 048
  16. VALTREX [Concomitant]
     Dosage: 500 MG, PRN
     Route: 048
  17. VICODIN [Concomitant]
     Dosage: UNK
     Route: 048

REACTIONS (19)
  - AUTOIMMUNE HEPATITIS [None]
  - BLOOD CREATININE INCREASED [None]
  - BLOOD PRESSURE INCREASED [None]
  - CHILLS [None]
  - CLOSTRIDIAL INFECTION [None]
  - GLOMERULOSCLEROSIS [None]
  - HEADACHE [None]
  - HYPERGAMMAGLOBULINAEMIA BENIGN MONOCLONAL [None]
  - NAUSEA [None]
  - OPEN WOUND [None]
  - PROTEINURIA [None]
  - PYREXIA [None]
  - RENAL DISORDER [None]
  - RENAL FAILURE ACUTE [None]
  - SEPSIS [None]
  - SKIN NECROSIS [None]
  - SYSTEMIC LUPUS ERYTHEMATOSUS [None]
  - TRANSAMINASES INCREASED [None]
  - VOMITING [None]
